FAERS Safety Report 6167536-7 (Version None)
Quarter: 2009Q2

REPORT INFORMATION
  Report Type: 
  Country: None (occurrence: None)
  Receive Date: 20090424
  Receipt Date: 20081112
  Transmission Date: 20091009
  Serious: Yes (Other)
  Sender: FDA-Public Use
  Company Number: A0748601A

PATIENT
  Age: 64 Year
  Sex: Male

DRUGS (2)
  1. FLOVENT [Suspect]
     Route: 065
  2. ALBUTEROL [Concomitant]

REACTIONS (2)
  - ASTHMA [None]
  - DRUG INEFFECTIVE [None]
